FAERS Safety Report 10373597 (Version 1)
Quarter: 2014Q3

REPORT INFORMATION
  Report Type: Report from Study
  Country: CA (occurrence: CA)
  Receive Date: 20140808
  Receipt Date: 20140808
  Transmission Date: 20150326
  Serious: Yes (Death, Hospitalization)
  Sender: FDA-Public Use
  Company Number: CA-JNJFOC-20140802524

PATIENT
  Age: 81 Year
  Sex: Male

DRUGS (2)
  1. TYLENOL [Suspect]
     Active Substance: ACETAMINOPHEN
     Route: 065
  2. TYLENOL [Suspect]
     Active Substance: ACETAMINOPHEN
     Indication: PRODUCT USED FOR UNKNOWN INDICATION
     Route: 065
     Dates: start: 20011224, end: 20011227

REACTIONS (12)
  - Coagulopathy [Fatal]
  - Haematemesis [Fatal]
  - Decubitus ulcer [Fatal]
  - Blood creatinine increased [Fatal]
  - Overdose [Fatal]
  - Hepatitis [Fatal]
  - Suicide attempt [Fatal]
  - Alcohol abuse [Fatal]
  - Blood disorder [Fatal]
  - Aspiration [Fatal]
  - Pneumothorax [Fatal]
  - Rhabdomyolysis [Fatal]
